FAERS Safety Report 12176322 (Version 1)
Quarter: 2016Q1

REPORT INFORMATION
  Report Type: Spontaneous
  Country: US (occurrence: US)
  Receive Date: 20160315
  Receipt Date: 20160315
  Transmission Date: 20160526
  Serious: No
  Sender: FDA-Public Use
  Company Number: US-LUPIN PHARMACEUTICALS INC.-E2B_00003654

PATIENT
  Age: 51 Year
  Sex: Female
  Weight: 52.21 kg

DRUGS (3)
  1. SERTRALINE TABLETS USP 100 MG [Suspect]
     Active Substance: SERTRALINE HYDROCHLORIDE
     Indication: POST-TRAUMATIC STRESS DISORDER
  2. ALPRAZOLAM. [Concomitant]
     Active Substance: ALPRAZOLAM
     Indication: PRODUCT USED FOR UNKNOWN INDICATION
     Route: 065
  3. SERTRALINE TABLETS USP 100 MG [Suspect]
     Active Substance: SERTRALINE HYDROCHLORIDE
     Indication: DEPRESSION
     Dates: start: 20150517

REACTIONS (3)
  - Diaphragmalgia [Not Recovered/Not Resolved]
  - Abdominal discomfort [Not Recovered/Not Resolved]
  - Dyspnoea [Not Recovered/Not Resolved]

NARRATIVE: CASE EVENT DATE: 20150517
